FAERS Safety Report 12221068 (Version 1)
Quarter: 2016Q1

REPORT INFORMATION
  Report Type: Spontaneous
  Country: CN (occurrence: CN)
  Receive Date: 20160330
  Receipt Date: 20160330
  Transmission Date: 20160526
  Serious: Yes (Other)
  Sender: FDA-Public Use
  Company Number: CN-BAXTER-2016BAX016337

PATIENT
  Age: 8 Year
  Sex: Male
  Weight: 21.6 kg

DRUGS (9)
  1. FUROSEMIDE INJECTION [Suspect]
     Active Substance: FUROSEMIDE
     Indication: INTRACRANIAL PRESSURE INCREASED
     Route: 042
     Dates: start: 20150625, end: 20150626
  2. ROCEPHIN [Suspect]
     Active Substance: CEFTRIAXONE SODIUM
     Indication: HAEMORRHAGE INTRACRANIAL
     Route: 041
     Dates: start: 20150625, end: 20150702
  3. 20% MANNITOL INJECTION [Suspect]
     Active Substance: MANNITOL
     Route: 041
     Dates: start: 20150704
  4. FUROSEMIDE INJECTION [Suspect]
     Active Substance: FUROSEMIDE
     Route: 042
     Dates: start: 20150628, end: 20150629
  5. 20% MANNITOL INJECTION [Suspect]
     Active Substance: MANNITOL
     Route: 041
     Dates: start: 20150629
  6. 20% MANNITOL INJECTION [Suspect]
     Active Substance: MANNITOL
     Route: 041
  7. FUROSEMIDE INJECTION [Suspect]
     Active Substance: FUROSEMIDE
     Route: 042
     Dates: start: 20150704, end: 20150706
  8. ROCEPHIN [Suspect]
     Active Substance: CEFTRIAXONE SODIUM
     Indication: SPONTANEOUS HAEMORRHAGE
  9. 20% MANNITOL INJECTION [Suspect]
     Active Substance: MANNITOL
     Indication: INTRACRANIAL PRESSURE INCREASED
     Route: 041
     Dates: start: 20150625

REACTIONS (1)
  - Renal impairment [Recovered/Resolved]

NARRATIVE: CASE EVENT DATE: 20150629
